FAERS Safety Report 5590622-7 (Version None)
Quarter: 2008Q1

REPORT INFORMATION
  Report Type: 
  Country: None (occurrence: None)
  Receive Date: 20080114
  Receipt Date: 20080103
  Transmission Date: 20080703
  Serious: Yes (Other)
  Sender: FDA-Public Use
  Company Number: US-PFIZER INC-2007040020

PATIENT
  Sex: Female

DRUGS (9)
  1. CHANTIX [Suspect]
     Indication: TOBACCO ABUSE
  2. LIPITOR [Suspect]
  3. CAFFEINE CITRATE [Suspect]
  4. GLUCOTROL XL [Concomitant]
  5. GLUCOPHAGE [Concomitant]
  6. VITAMIN E [Concomitant]
  7. ACETYLSALICYLIC ACID SRT [Concomitant]
  8. VACCINIUM MACROCARPON [Concomitant]
  9. NIACIN [Concomitant]

REACTIONS (11)
  - ANXIETY [None]
  - BREAST CALCIFICATIONS [None]
  - CONSTIPATION [None]
  - DISTURBANCE IN ATTENTION [None]
  - FLATULENCE [None]
  - INTERVERTEBRAL DISC DEGENERATION [None]
  - MEMORY IMPAIRMENT [None]
  - NERVOUS SYSTEM DISORDER [None]
  - NUCLEAR MAGNETIC RESONANCE IMAGING BRAIN ABNORMAL [None]
  - PSYCHOTIC DISORDER [None]
  - SOMNOLENCE [None]
